FAERS Safety Report 23591202 (Version 1)
Quarter: 2024Q1

REPORT INFORMATION
  Report Type: Report from Study
  Country: US (occurrence: US)
  Receive Date: 20240304
  Receipt Date: 20240304
  Transmission Date: 20240410
  Serious: Yes (Other)
  Sender: FDA-Public Use
  Company Number: US-GILEAD-2024-0664083

PATIENT
  Sex: Female

DRUGS (6)
  1. SACITUZUMAB GOVITECAN-HZIY [Suspect]
     Active Substance: SACITUZUMAB GOVITECAN-HZIY
     Indication: Triple negative breast cancer
     Dosage: 3 WEEK CYCLE, 1 INFUSION A WEEK FOR 2 WEEKS AND THEN 3RD IS AN OFF WEEK
     Route: 042
     Dates: start: 202202
  2. ABRAXANE [Concomitant]
     Active Substance: PACLITAXEL
     Indication: Breast cancer
     Dosage: UNKNOWN
     Dates: start: 202108, end: 202201
  3. GRANIX [Concomitant]
     Active Substance: TBO-FILGRASTIM
     Dosage: UNKNOWN
  4. VITAMINS [Concomitant]
     Active Substance: VITAMINS
     Dosage: UNKNOWN
  5. IRON [Concomitant]
     Active Substance: IRON
     Dosage: UNKNOWN
  6. VITAMIN C [Concomitant]
     Active Substance: ASCORBIC ACID
     Dosage: UNKNOWN

REACTIONS (2)
  - Immunodeficiency [Not Recovered/Not Resolved]
  - Alopecia [Not Recovered/Not Resolved]
